FAERS Safety Report 8538947-7 (Version None)
Quarter: 2012Q3

REPORT INFORMATION
  Report Type: 
  Country: None (occurrence: None)
  Receive Date: 20120713
  Receipt Date: 20120702
  Transmission Date: 20120928
  Serious: Yes (Other)
  Sender: FDA-Public Use
  Company Number: 2012P1048115

PATIENT

DRUGS (1)
  1. HYDROMORPHONE HCL [Suspect]
     Dosage: 20 MG;X1;IV
     Route: 042

REACTIONS (2)
  - DEVICE COMPUTER ISSUE [None]
  - INCORRECT DRUG ADMINISTRATION RATE [None]
